FAERS Safety Report 8321461-1 (Version None)
Quarter: 2012Q2

REPORT INFORMATION
  Report Type: 
  Country: None (occurrence: None)
  Receive Date: 20120430
  Receipt Date: 20120430
  Transmission Date: 20120825
  Serious: No
  Sender: FDA-Public Use
  Company Number: None

PATIENT
  Sex: Female
  Weight: 104.32 kg

DRUGS (1)
  1. CYMBALTA [Suspect]
     Indication: DEPRESSION
     Dosage: 30 MG
     Route: 048
     Dates: start: 20101101, end: 20120401

REACTIONS (10)
  - VERTIGO [None]
  - IMPAIRED WORK ABILITY [None]
  - SLEEP DISORDER [None]
  - NEUROPATHY PERIPHERAL [None]
  - NAUSEA [None]
  - DRUG WITHDRAWAL SYNDROME [None]
  - IMPAIRED DRIVING ABILITY [None]
  - IATROGENIC INJURY [None]
  - TREATMENT NONCOMPLIANCE [None]
  - DIZZINESS [None]
